FAERS Safety Report 12410130 (Version 1)
Quarter: 2016Q2

REPORT INFORMATION
  Report Type: Spontaneous
  Country: US (occurrence: None)
  Receive Date: 20160526
  Receipt Date: 20160526
  Transmission Date: 20160815
  Serious: Yes (Disabling)
  Sender: FDA-Public Use
  Company Number: None

PATIENT
  Age: 21 Year
  Sex: Female
  Weight: 77.11 kg

DRUGS (6)
  1. MULTI-VITAMIN [Concomitant]
     Active Substance: .ALPHA.-TOCOPHEROL ACETATE, DL-\ASCORBIC ACID\CYANOCOBALAMIN\FLUORIDE ION\FOLIC ACID\NIACIN\PYRIDOXINE\RIBOFLAVIN\THIAMINE\VITAMIN A\VITAMIN D
  2. MIRENA [Suspect]
     Active Substance: LEVONORGESTREL
  3. PLEXUS NERVE [Concomitant]
  4. IBUPROFEN. [Concomitant]
     Active Substance: IBUPROFEN
  5. STOOL SOFTNER [Concomitant]
     Active Substance: DOCUSATE SODIUM
  6. PLEXUS TRIPLEX PRODUCTS [Concomitant]

REACTIONS (53)
  - Seizure [None]
  - Gait disturbance [None]
  - Activities of daily living impaired [None]
  - Weight decreased [None]
  - Dyspepsia [None]
  - Arthralgia [None]
  - Joint swelling [None]
  - Aphthous ulcer [None]
  - Fungal infection [None]
  - Aphasia [None]
  - Paraesthesia [None]
  - Migraine [None]
  - Dental caries [None]
  - Irritability [None]
  - Impaired driving ability [None]
  - Chest pain [None]
  - Burning sensation [None]
  - Urticaria [None]
  - Irritable bowel syndrome [None]
  - Cystitis [None]
  - Memory impairment [None]
  - Limb discomfort [None]
  - Pruritus [None]
  - Scratch [None]
  - Dyspareunia [None]
  - Libido decreased [None]
  - Breast pain [None]
  - Back pain [None]
  - Breast swelling [None]
  - Candida infection [None]
  - Acne [None]
  - Dry mouth [None]
  - Foreign body [None]
  - Gingival disorder [None]
  - Muscular weakness [None]
  - Pain in extremity [None]
  - Carpal tunnel syndrome [None]
  - Hypoaesthesia [None]
  - Peripheral swelling [None]
  - Decreased appetite [None]
  - Breast mass [None]
  - Feeling abnormal [None]
  - Fatigue [None]
  - Somnolence [None]
  - Asthenopia [None]
  - Heart rate increased [None]
  - Muscle twitching [None]
  - Ovarian cyst [None]
  - Aptyalism [None]
  - Choking [None]
  - Tooth disorder [None]
  - Vaginal ulceration [None]
  - Mood altered [None]

NARRATIVE: CASE EVENT DATE: 20010906
